FAERS Safety Report 4819520-0 (Version None)
Quarter: 2005Q4

REPORT INFORMATION
  Report Type: 
  Country: None (occurrence: None)
  Receive Date: 20051103
  Receipt Date: 20051005
  Transmission Date: 20060501
  Serious: Yes (Death, Other)
  Sender: FDA-Public Use
  Company Number: 2005AP05250

PATIENT
  Age: 21813 Day
  Sex: Male
  Weight: 65.1 kg

DRUGS (6)
  1. IRESSA [Suspect]
     Indication: NON-SMALL CELL LUNG CANCER
     Route: 048
     Dates: start: 20050901, end: 20050928
  2. LOXONIN [Concomitant]
     Indication: CANCER PAIN
     Dosage: 60-180 MG
     Route: 048
     Dates: start: 20050815, end: 20051002
  3. SELBEX [Concomitant]
     Indication: GASTRITIS
     Dosage: 50-150 MG
     Route: 048
     Dates: start: 20050815, end: 20051002
  4. CISPLATIN [Concomitant]
     Dosage: 4 CYCLES DAY 1 AND 8
     Dates: start: 20050324, end: 20050628
  5. GEMCITABINE [Concomitant]
     Dosage: 4 CYCLES DAY 1 AND 8
     Dates: start: 20050324, end: 20050628
  6. VINORELBINE [Concomitant]
     Dosage: 4 CYCLES DAY 1 AND 8
     Dates: start: 20050324, end: 20050628

REACTIONS (4)
  - CARDIAC ARREST [None]
  - HAEMOPTYSIS [None]
  - PNEUMONIA STAPHYLOCOCCAL [None]
  - REFUSAL OF TREATMENT BY PATIENT [None]
